FAERS Safety Report 9513455 (Version 1)
Quarter: 2013Q3

REPORT INFORMATION
  Report Type: Spontaneous
  Country: US (occurrence: US)
  Receive Date: 20130910
  Receipt Date: 20130910
  Transmission Date: 20140515
  Serious: Yes (Hospitalization, Other)
  Sender: FDA-Public Use
  Company Number: US-TARO-2013P1002305

PATIENT
  Age: 80 Year
  Sex: Male
  Weight: 100.25 kg

DRUGS (3)
  1. WARFARIN SODIUM TABLETS USP 2.5MG [Suspect]
     Route: 048
     Dates: start: 201211, end: 20121214
  2. WARFARIN SODIUM TABLETS USP 2.5MG [Suspect]
     Route: 048
     Dates: start: 201211, end: 20121214
  3. ENOXAPARIN 150MG/ML [Suspect]
     Route: 058
     Dates: start: 201211, end: 20121214

REACTIONS (3)
  - Contusion [Recovering/Resolving]
  - Haemorrhage [Recovered/Resolved]
  - Anaemia [Recovering/Resolving]
